FAERS Safety Report 7758595-6 (Version None)
Quarter: 2011Q3

REPORT INFORMATION
  Report Type: 
  Country: None (occurrence: None)
  Receive Date: 20110919
  Receipt Date: 20110906
  Transmission Date: 20111222
  Serious: Yes (Death, Other)
  Sender: FDA-Public Use
  Company Number: CA-ELI_LILLY_AND_COMPANY-CA201109001303

PATIENT
  Sex: Female

DRUGS (5)
  1. CHLORPROMAZINE HCL [Concomitant]
  2. ZYPREXA [Suspect]
     Dosage: 15 MG, UNK
  3. ZYPREXA ZYDIS [Suspect]
     Indication: SCHIZOAFFECTIVE DISORDER
     Dosage: 15 MG, UNK
  4. CLONAZEPAM [Concomitant]
  5. ZYPREXA [Suspect]
     Indication: SCHIZOAFFECTIVE DISORDER
     Dosage: 10 MG, UNK

REACTIONS (4)
  - DEATH [None]
  - HEPATITIS C [None]
  - TYPE 2 DIABETES MELLITUS [None]
  - HYPERGLYCAEMIA [None]
